FAERS Safety Report 16740381 (Version 1)
Quarter: 2019Q3

REPORT INFORMATION
  Report Type: Spontaneous
  Country: US (occurrence: US)
  Receive Date: 20190826
  Receipt Date: 20190826
  Transmission Date: 20191005
  Serious: Yes (Other)
  Sender: FDA-Public Use
  Company Number: PHHY2019US197249

PATIENT
  Age: 66 Year
  Sex: Female

DRUGS (1)
  1. DIGOXIN. [Suspect]
     Active Substance: DIGOXIN
     Indication: CARDIAC AMYLOIDOSIS
     Dosage: UNK
     Route: 065

REACTIONS (4)
  - Atrial tachycardia [Unknown]
  - Product use in unapproved indication [Unknown]
  - Atrioventricular block second degree [Unknown]
  - Toxicity to various agents [Recovered/Resolved]
